FAERS Safety Report 8980304 (Version 1)
Quarter: 2012Q4

REPORT INFORMATION
  Report Type: 
  Country: CH (occurrence: CH)
  Receive Date: 20121221
  Receipt Date: 20121221
  Transmission Date: 20130627
  Serious: Yes (Other)
  Sender: FDA-Public Use
  Company Number: PHHY2012CH114415

PATIENT
  Sex: Female

DRUGS (5)
  1. FEMARA [Suspect]
     Dosage: 5 mg, daily
     Route: 048
     Dates: start: 201206, end: 201206
  2. AROMASIN [Suspect]
     Dosage: 25 mg daily
     Route: 048
     Dates: start: 20121001, end: 20121014
  3. CITALOPRAM [Concomitant]
     Dosage: 20 mg, QD
     Route: 048
     Dates: end: 20120715
  4. CITALOPRAM [Concomitant]
     Dosage: 40 mg, QD
     Route: 048
     Dates: start: 20120716
  5. XANAX [Concomitant]
     Dosage: 0.5 mg, TID
     Route: 048

REACTIONS (4)
  - Dissociative disorder [Unknown]
  - Depersonalisation [Unknown]
  - Concomitant disease progression [Unknown]
  - Depression [Not Recovered/Not Resolved]
